FAERS Safety Report 6168283-8 (Version None)
Quarter: 2009Q2

REPORT INFORMATION
  Report Type: 
  Country: None (occurrence: None)
  Receive Date: 20090427
  Receipt Date: 20090416
  Transmission Date: 20091009
  Serious: Yes (Hospitalization)
  Sender: FDA-Public Use
  Company Number: FR-PFIZER INC-2009199852

PATIENT

DRUGS (4)
  1. SUTENT [Suspect]
     Indication: RENAL CANCER METASTATIC
     Dosage: 50 MG, UNK
     Dates: start: 20070720
  2. ZANEDIP [Concomitant]
     Indication: HYPERTENSION
  3. ZOFENIL [Concomitant]
     Indication: HYPERTENSION
  4. PREVISCAN [Concomitant]
     Indication: VENOUS THROMBOSIS

REACTIONS (1)
  - OESOPHAGITIS ULCERATIVE [None]
